FAERS Safety Report 5106548-9 (Version None)
Quarter: 2006Q3

REPORT INFORMATION
  Report Type: 
  Country: None (occurrence: None)
  Receive Date: 20060918
  Receipt Date: 20060915
  Transmission Date: 20061208
  Serious: Yes (Other)
  Sender: FDA-Public Use
  Company Number: US-GLAXOSMITHKLINE-A0620325A

PATIENT
  Age: 45 Year
  Sex: Female

DRUGS (3)
  1. LAMICTAL [Suspect]
     Dosage: 200MG PER DAY
     Route: 048
  2. LUNESTA [Concomitant]
  3. UNSPECIFIED MEDICATION [Concomitant]

REACTIONS (2)
  - CONVULSION [None]
  - FALL [None]
